FAERS Safety Report 10561631 (Version 1)
Quarter: 2014Q4

REPORT INFORMATION
  Report Type: Report from Study
  Country: US (occurrence: US)
  Receive Date: 20141103
  Receipt Date: 20141103
  Transmission Date: 20150529
  Serious: Yes (Death, Hospitalization)
  Sender: FDA-Public Use
  Company Number: US-009507513-1411USA000227

PATIENT
  Age: 82 Year
  Sex: Male

DRUGS (3)
  1. VORINOSTAT [Suspect]
     Active Substance: VORINOSTAT
     Indication: ACUTE MYELOID LEUKAEMIA
     Dosage: 500 MG, TID
     Dates: start: 20140913
  2. TEMOZOLOMIDE. [Suspect]
     Active Substance: TEMOZOLOMIDE
     Indication: ACUTE MYELOID LEUKAEMIA
     Dosage: 320 MG, QD
     Route: 048
     Dates: end: 20140920
  3. VORINOSTAT [Suspect]
     Active Substance: VORINOSTAT
     Dosage: 300 MG, QD
     Dates: end: 20140920

REACTIONS (2)
  - Febrile neutropenia [Fatal]
  - Pneumonia [Fatal]

NARRATIVE: CASE EVENT DATE: 20140921
